FAERS Safety Report 15419269 (Version 9)
Quarter: 2022Q3

REPORT INFORMATION
  Report Type: Spontaneous
  Country: US (occurrence: US)
  Receive Date: 20180924
  Receipt Date: 20220816
  Transmission Date: 20221027
  Serious: Yes (Hospitalization, Other)
  Sender: FDA-Public Use
  Company Number: US-PFIZER INC-2018381253

PATIENT
  Age: 50 Year
  Sex: Male
  Weight: 93 kg

DRUGS (5)
  1. LYRICA [Suspect]
     Active Substance: PREGABALIN
     Indication: Nerve injury
     Dosage: 100 MG, 3X/DAY
     Route: 048
  2. LYRICA [Suspect]
     Active Substance: PREGABALIN
     Indication: Back pain
     Dosage: 100 MG, AS NEEDED (TAKE 1 CAPSULE ORAL THREE TIMES A DAY PRN (AS NEEDED))
     Route: 048
  3. LYRICA [Suspect]
     Active Substance: PREGABALIN
     Indication: Pain
     Dosage: 3 DF, DAILY
     Dates: start: 20160220
  4. OXYCODONE [Concomitant]
     Active Substance: OXYCODONE
     Indication: Neck surgery
     Dosage: 7.5 MG, AS NEEDED
     Route: 048
     Dates: start: 2013
  5. OXYCODONE [Concomitant]
     Active Substance: OXYCODONE
     Indication: Spinal operation

REACTIONS (4)
  - Limb discomfort [Recovered/Resolved]
  - Femur fracture [Unknown]
  - Limb injury [Unknown]
  - Expired product administered [Unknown]

NARRATIVE: CASE EVENT DATE: 20180914
